FAERS Safety Report 8481170-5 (Version None)
Quarter: 2012Q3

REPORT INFORMATION
  Report Type: 
  Country: None (occurrence: None)
  Receive Date: 20120702
  Receipt Date: 20120626
  Transmission Date: 20120928
  Serious: Yes (Hospitalization)
  Sender: FDA-Public Use
  Company Number: PHHY2012IL055563

PATIENT
  Age: 65 Year
  Sex: Male

DRUGS (6)
  1. CERTICAN [Interacting]
     Dosage: 1 MG, UNK
     Route: 048
  2. INTERFERON [Interacting]
     Indication: HEPATITIS C
  3. BOCEPREVIR [Interacting]
     Indication: HEPATITIS C
  4. RIBAVIRIN [Interacting]
     Indication: HEPATITIS C
  5. CERTICAN [Suspect]
     Indication: LIVER TRANSPLANT
     Dosage: 1 MG, BID
     Route: 048
  6. CERTICAN [Interacting]
     Dosage: 1 MG OR 2 MG PER DAY INTERMITTANTLY
     Route: 048

REACTIONS (2)
  - MOUTH ULCERATION [None]
  - DRUG INTERACTION [None]
